FAERS Safety Report 4599597-0 (Version None)
Quarter: 2005Q1

REPORT INFORMATION
  Report Type: 
  Country: None (occurrence: None)
  Receive Date: 20050127
  Receipt Date: 20041019
  Transmission Date: 20050727
  Serious: No
  Sender: FDA-Public Use
  Company Number: USA041081499

PATIENT
  Age: 61 Year
  Sex: Female
  Weight: 48 kg

DRUGS (6)
  1. STRATTERA [Suspect]
     Indication: ATTENTION DEFICIT/HYPERACTIVITY DISORDER
     Dosage: 60 MG/1 DAY
     Dates: start: 20040601
  2. FOSAMAX [Concomitant]
  3. CALCIUM GLUCONATE [Concomitant]
  4. VITAMIN A-ZINC [Concomitant]
  5. ASPIRIN [Concomitant]
  6. FISH OIL [Concomitant]

REACTIONS (4)
  - COLD SWEAT [None]
  - FEELING ABNORMAL [None]
  - MOOD SWINGS [None]
  - THINKING ABNORMAL [None]
